FAERS Safety Report 14398334 (Version 2)
Quarter: 2018Q1

REPORT INFORMATION
  Report Type: Spontaneous
  Country: US (occurrence: US)
  Receive Date: 20180116
  Receipt Date: 20180206
  Transmission Date: 20180509
  Serious: Yes (Other)
  Sender: FDA-Public Use
  Company Number: US-GLAXOSMITHKLINE-US2018GSK007330

PATIENT
  Sex: Female

DRUGS (1)
  1. BENLYSTA [Suspect]
     Active Substance: BELIMUMAB
     Indication: SYSTEMIC LUPUS ERYTHEMATOSUS

REACTIONS (7)
  - Diverticulitis [Unknown]
  - Nausea [Unknown]
  - Nasopharyngitis [Unknown]
  - Vomiting [Unknown]
  - Bronchitis [Unknown]
  - Cystitis [Unknown]
  - Malaise [Unknown]
